FAERS Safety Report 14540298 (Version 2)
Quarter: 2018Q3

REPORT INFORMATION
  Report Type: Report from Study
  Country: None (occurrence: CO)
  Receive Date: 20180216
  Receipt Date: 20180719
  Transmission Date: 20181010
  Serious: Yes (Hospitalization, Other)
  Sender: FDA-Public Use
  Company Number: CO-ABBVIE-18K-036-2258954-00

PATIENT
  Age: 61 Year
  Sex: Male

DRUGS (1)
  1. HUMIRA [Suspect]
     Active Substance: ADALIMUMAB
     Indication: PSORIASIS
     Route: 058
     Dates: start: 20081217, end: 20170929

REACTIONS (11)
  - Dehydration [Recovering/Resolving]
  - Psoriasis [Not Recovered/Not Resolved]
  - Diarrhoea [Recovering/Resolving]
  - Malaise [Recovering/Resolving]
  - Monoplegia [Not Recovered/Not Resolved]
  - Vomiting [Recovering/Resolving]
  - Ejaculation disorder [Not Recovered/Not Resolved]
  - Semen discolouration [Not Recovered/Not Resolved]
  - Humerus fracture [Not Recovered/Not Resolved]
  - Fall [Not Recovered/Not Resolved]
  - Muscular weakness [Recovering/Resolving]

NARRATIVE: CASE EVENT DATE: 201707
